FAERS Safety Report 25965353 (Version 1)
Quarter: 2025Q4

REPORT INFORMATION
  Report Type: Spontaneous
  Country: US (occurrence: US)
  Receive Date: 20251027
  Receipt Date: 20251027
  Transmission Date: 20260118
  Serious: Yes (Hospitalization)
  Sender: SANOFI AVENTIS
  Company Number: US-SA-2025SA312526

PATIENT
  Age: 49 Year
  Sex: Female
  Weight: 71.655 kg

DRUGS (30)
  1. DUPIXENT [Suspect]
     Active Substance: DUPILUMAB
     Indication: Asthma
     Dosage: 300 MG, QOW
     Route: 058
  2. ACETAMINOPHEN AND CODEINE [Concomitant]
     Active Substance: ACETAMINOPHEN\CODEINE PHOSPHATE
     Dosage: UNK
  3. Thermotabs [Concomitant]
     Dosage: 287-180-15
  4. SPIRIVA RESPIMAT [Concomitant]
     Active Substance: TIOTROPIUM BROMIDE
     Dosage: UNK
  5. FERROUS SULFATE [Concomitant]
     Active Substance: FERROUS SULFATE
     Dosage: UNK
  6. SINGULAIR [Concomitant]
     Active Substance: MONTELUKAST SODIUM
     Dosage: UNK
  7. PROGESTERONE [Concomitant]
     Active Substance: PROGESTERONE
     Dosage: UNK
  8. PREDNISONE [Concomitant]
     Active Substance: PREDNISONE
     Dosage: UNK
  9. NP THYROID [Concomitant]
     Active Substance: LEVOTHYROXINE\LIOTHYRONINE
     Dosage: UNK
  10. NEXIUM [Concomitant]
     Active Substance: ESOMEPRAZOLE MAGNESIUM
     Dosage: UNK
  11. IBUPROFEN [Concomitant]
     Active Substance: IBUPROFEN
     Dosage: UNK
  12. Hair skin nails [Concomitant]
     Dosage: UNK
  13. GABAPENTIN [Concomitant]
     Active Substance: GABAPENTIN
     Dosage: UNK
  14. CYCLOBENZAPRINE HYDROCHLORIDE [Concomitant]
     Active Substance: CYCLOBENZAPRINE HYDROCHLORIDE
     Dosage: UNK
  15. FAMOTIDINE [Concomitant]
     Active Substance: FAMOTIDINE
     Dosage: UNK
  16. OXYGEN [Concomitant]
     Active Substance: OXYGEN
     Dosage: UNK
  17. DULOXETINE HYDROCHLORIDE [Concomitant]
     Active Substance: DULOXETINE HYDROCHLORIDE
     Dosage: UNK
  18. LORATADINE [Concomitant]
     Active Substance: LORATADINE
     Dosage: UNK
  19. BUDESONIDE [Concomitant]
     Active Substance: BUDESONIDE
     Dosage: 0.25MG/2ML AMP
  20. BREYNA [Concomitant]
     Active Substance: BUDESONIDE\FORMOTEROL FUMARATE
     Dosage: 160-4.5 MCG HFA AER AD
  21. BREO ELLIPTA [Concomitant]
     Active Substance: FLUTICASONE FUROATE\VILANTEROL TRIFENATATE
     Dosage: 200-25 MCG BLST W/ DEV
  22. BACTRIM DS [Concomitant]
     Active Substance: SULFAMETHOXAZOLE\TRIMETHOPRIM
     Dosage: UNK
  23. AMLODIPINE BESYLATE [Concomitant]
     Active Substance: AMLODIPINE BESYLATE
     Dosage: UNK
  24. ALBUTEROL SULFATE [Concomitant]
     Active Substance: ALBUTEROL SULFATE
     Dosage: UNK
  25. ALBUTEROL SULFATE [Concomitant]
     Active Substance: ALBUTEROL SULFATE
     Dosage: UNK
  26. SELENIUM [Concomitant]
     Active Substance: SELENIUM
     Dosage: UNK
  27. ZINC [Concomitant]
     Active Substance: ZINC
     Dosage: UNK
  28. IODINE [Concomitant]
     Active Substance: IODINE
     Dosage: UNK
  29. LEVOTHYROXINE [Concomitant]
     Active Substance: LEVOTHYROXINE
     Dosage: UNK
  30. CALCIUM MAGNESIUM ZINC VITAMIN D3 [Concomitant]
     Dosage: 33MG-133

REACTIONS (1)
  - Asthma [Unknown]

NARRATIVE: CASE EVENT DATE: 20250401
